FAERS Safety Report 10775069 (Version 2)
Quarter: 2015Q2

REPORT INFORMATION
  Report Type: Spontaneous
  Country: DE (occurrence: DE)
  Receive Date: 20150209
  Receipt Date: 20150416
  Transmission Date: 20150821
  Serious: Yes (Life-Threatening, Hospitalization, Other)
  Sender: FDA-Public Use
  Company Number: DE-JNJFOC-20150201175

PATIENT
  Sex: Male
  Weight: 90.7 kg

DRUGS (12)
  1. XARELTO [Suspect]
     Active Substance: RIVAROXABAN
     Indication: EMBOLISM VENOUS
     Route: 048
     Dates: start: 201407, end: 201411
  2. XARELTO [Suspect]
     Active Substance: RIVAROXABAN
     Indication: THROMBOSIS
     Route: 048
     Dates: start: 201407, end: 201411
  3. BERODUAL [Concomitant]
     Active Substance: FENOTEROL HYDROBROMIDE\IPRATROPIUM BROMIDE
     Route: 065
  4. LEVOFLOXACIN. [Concomitant]
     Active Substance: LEVOFLOXACIN
     Route: 065
  5. OMEP [Concomitant]
     Active Substance: OMEPRAZOLE
     Route: 065
  6. XARELTO [Suspect]
     Active Substance: RIVAROXABAN
     Indication: PULMONARY EMBOLISM
     Route: 048
     Dates: start: 201407, end: 201411
  7. RAMIPRIL. [Concomitant]
     Active Substance: RAMIPRIL
     Route: 065
  8. XOLAIR [Concomitant]
     Active Substance: OMALIZUMAB
     Route: 065
  9. PENICILLIN NOS [Concomitant]
     Active Substance: PENICILLIN
     Route: 065
  10. BISOPROLOL [Concomitant]
     Active Substance: BISOPROLOL
     Route: 065
  11. DECORTIN [Concomitant]
     Active Substance: PREDNISONE
     Route: 065
     Dates: start: 20141216
  12. PROBENECID. [Concomitant]
     Active Substance: PROBENECID
     Route: 065

REACTIONS (13)
  - Troponin increased [Recovering/Resolving]
  - Fluid retention [Recovering/Resolving]
  - Cardiac failure [Unknown]
  - Asthenia [Unknown]
  - Haemorrhage [Recovering/Resolving]
  - Ecchymosis [Unknown]
  - Oedema peripheral [Recovering/Resolving]
  - Normochromic normocytic anaemia [Unknown]
  - Skin haemorrhage [Unknown]
  - Abdominal pain [Unknown]
  - Subcutaneous haematoma [Unknown]
  - Red blood cell count decreased [Recovering/Resolving]
  - Retroperitoneal haemorrhage [Unknown]
